FAERS Safety Report 9640416 (Version 1)
Quarter: 2013Q4

REPORT INFORMATION
  Report Type: Spontaneous
  Country: US (occurrence: None)
  Receive Date: 20131022
  Receipt Date: 20131022
  Transmission Date: 20140711
  Serious: Yes (Hospitalization)
  Sender: FDA-Public Use
  Company Number: None

PATIENT
  Age: 75 Year
  Sex: Male

DRUGS (10)
  1. CELEXA [Suspect]
     Indication: DEPRESSION
     Dosage: 1 IN A.M BY MOUTH
     Route: 048
     Dates: start: 20130119, end: 20130529
  2. CYMBALTA [Suspect]
     Dosage: 1 CAP IN AM BY MOUTH
     Dates: start: 20130914, end: 20130915
  3. NAPROXEN SODIUM [Concomitant]
  4. ERYTHROMYCIN [Concomitant]
  5. VERAPAMIL 240 MG [Concomitant]
  6. LISINOPRIL 10 MG [Concomitant]
  7. FISH OIL [Concomitant]
  8. JUICE PLUS [Concomitant]
  9. B 12 [Concomitant]
  10. ASPIRIN [Concomitant]

REACTIONS (3)
  - Asthenia [None]
  - Heart rate decreased [None]
  - Dizziness [None]
